FAERS Safety Report 5584019-3 (Version None)
Quarter: 2008Q1

REPORT INFORMATION
  Report Type: 
  Country: None (occurrence: None)
  Receive Date: 20080104
  Receipt Date: 20080104
  Transmission Date: 20080703
  Serious: Yes (Other)
  Sender: FDA-Public Use
  Company Number: None

PATIENT
  Age: 74 Year
  Sex: Female
  Weight: 58.9676 kg

DRUGS (1)
  1. METOPROLOL SUCCINATE EXTENDED RELEASE [Suspect]
     Indication: HYPERTENSION
     Dosage: 75MG QD PO
     Route: 048
     Dates: start: 20070809, end: 20071106

REACTIONS (3)
  - BLOOD PRESSURE INCREASED [None]
  - DRUG INEFFECTIVE [None]
  - THERAPEUTIC RESPONSE UNEXPECTED WITH DRUG SUBSTITUTION [None]
